FAERS Safety Report 5119413-8 (Version None)
Quarter: 2006Q4

REPORT INFORMATION
  Report Type: 
  Country: None (occurrence: None)
  Receive Date: 20061003
  Receipt Date: 20060922
  Transmission Date: 20070319
  Serious: Yes (Other)
  Sender: FDA-Public Use
  Company Number: AU-JNJFOC-20060906846

PATIENT
  Age: 48 Year
  Sex: Female

DRUGS (1)
  1. TOPAMAX [Suspect]
     Indication: PARTIAL SEIZURES

REACTIONS (1)
  - SOMATIC DELUSION [None]
